FAERS Safety Report 7438061-8 (Version None)
Quarter: 2011Q2

REPORT INFORMATION
  Report Type: 
  Country: None (occurrence: None)
  Receive Date: 20110426
  Receipt Date: 20110420
  Transmission Date: 20111010
  Serious: Yes (Death, Other)
  Sender: FDA-Public Use
  Company Number: PHHY2010JP61711

PATIENT
  Sex: Male
  Weight: 53 kg

DRUGS (10)
  1. DECADRON [Suspect]
     Indication: METASTATIC RENAL CELL CARCINOMA
     Dosage: 1.5 MG
     Route: 048
     Dates: start: 20100525, end: 20100831
  2. SUMIFERON [Concomitant]
     Indication: METASTATIC RENAL CELL CARCINOMA
     Dosage: 3000000 IU
     Dates: start: 20060629, end: 20080226
  3. SUMIFERON [Concomitant]
     Dosage: 5000000 IU
     Dates: end: 20080226
  4. DAIKENTYUTO [Concomitant]
     Indication: METASTATIC RENAL CELL CARCINOMA
     Dosage: 7.5 MG
     Route: 048
     Dates: start: 20100520, end: 20100915
  5. SORAFENIB TOSILATE [Concomitant]
     Indication: METASTATIC RENAL CELL CARCINOMA
     Dosage: 400 MG, UNK
     Route: 048
     Dates: start: 20080624, end: 20091018
  6. TRANSAMIN [Concomitant]
     Indication: METASTATIC RENAL CELL CARCINOMA
     Dosage: 1500 MG
     Route: 048
     Dates: start: 20100520, end: 20100622
  7. LOXONIN [Concomitant]
     Indication: METASTATIC RENAL CELL CARCINOMA
     Dosage: 60 MG
     Route: 048
     Dates: start: 20100520, end: 20100915
  8. AFINITOR [Suspect]
     Indication: METASTATIC RENAL CELL CARCINOMA
     Dosage: 10 MG
     Route: 048
     Dates: start: 20100520, end: 20100723
  9. SUNITINIB MALATE [Concomitant]
     Indication: METASTATIC RENAL CELL CARCINOMA
     Dosage: 37.5 MG
     Route: 048
     Dates: start: 20091022, end: 20100503
  10. MUCODYNE [Concomitant]
     Indication: METASTATIC RENAL CELL CARCINOMA
     Dosage: 1500 MG
     Route: 048

REACTIONS (7)
  - INTERSTITIAL LUNG DISEASE [None]
  - NEOPLASM MALIGNANT [None]
  - PYREXIA [None]
  - LYMPHOCYTE COUNT DECREASED [None]
  - HERPES ZOSTER [None]
  - HYPERGLYCAEMIA [None]
  - MENINGITIS [None]
